FAERS Safety Report 13253904 (Version 1)
Quarter: 2017Q1

REPORT INFORMATION
  Report Type: Report from Study
  Country: US (occurrence: US)
  Receive Date: 20170220
  Receipt Date: 20170220
  Transmission Date: 20170428
  Serious: Yes (Other)
  Sender: FDA-Public Use
  Company Number: US-MYLANLABS-2017M1009559

PATIENT

DRUGS (2)
  1. ETOPOSIDE. [Suspect]
     Active Substance: ETOPOSIDE
     Indication: MALIGNANT GLIOMA
     Dosage: 50 MG/M -2 DAILY FOR 21 CONSECUTIVE DAYS OF EACH 28 DAY CYCLE
     Route: 048
  2. BEVACIZUMAB [Suspect]
     Active Substance: BEVACIZUMAB
     Indication: MALIGNANT GLIOMA
     Dosage: 10 MG/KG -1 EVERY 14 DAYS
     Route: 042

REACTIONS (1)
  - Proteinuria [Unknown]
